FAERS Safety Report 25837197 (Version 3)
Quarter: 2025Q4

REPORT INFORMATION
  Report Type: Report from Study
  Country: US (occurrence: US)
  Receive Date: 20250923
  Receipt Date: 20251027
  Transmission Date: 20260117
  Serious: Yes (Other)
  Sender: TAKEDA
  Company Number: US-TAKEDA-2025TUS006893

PATIENT
  Age: 66 Year
  Sex: Male

DRUGS (2)
  1. MARIBAVIR [Suspect]
     Active Substance: MARIBAVIR
     Indication: Cytomegalovirus infection
     Dosage: 400 MILLIGRAM, BID
     Dates: start: 20250203, end: 20251008
  2. MARIBAVIR [Suspect]
     Active Substance: MARIBAVIR
     Indication: Kidney infection
     Dosage: UNK

REACTIONS (9)
  - Kidney infection [Unknown]
  - Cytomegalovirus infection reactivation [Unknown]
  - Insurance issue [Unknown]
  - Norovirus infection [Unknown]
  - Product dose omission issue [Unknown]
  - Viral infection [Not Recovered/Not Resolved]
  - Product use issue [Unknown]
  - Drug ineffective [Unknown]
  - Drug resistance [Unknown]
